FAERS Safety Report 8832165 (Version 7)
Quarter: 2013Q1

REPORT INFORMATION
  Report Type: Report from Study
  Country: US (occurrence: US)
  Receive Date: 20121009
  Receipt Date: 20130226
  Transmission Date: 20140127
  Serious: No
  Sender: FDA-Public Use
  Company Number: US-VERTEX PHARMACEUTICAL INC.-2012-022209

PATIENT
  Age: 56 Year
  Sex: Male
  Weight: 77 kg

DRUGS (7)
  1. VX-950 (TELAPREVIR) [Suspect]
     Indication: HEPATITIS C
     Dosage: 750 MG, TID
     Route: 048
     Dates: start: 20120926
  2. PEGASYS [Suspect]
     Indication: HEPATITIS C
     Dosage: 180 ?G, WEEKLY
     Route: 058
     Dates: start: 20120926
  3. RIBASPHERE [Suspect]
     Indication: HEPATITIS C
     Dosage: 600 MG QAM, 400 MG QPM
     Route: 048
     Dates: start: 20120926
  4. AMLODIPINE BESYLATE [Concomitant]
     Dosage: 5 MG, QD
     Route: 048
  5. DIOVAN [Concomitant]
     Dosage: 160 MG, QD
     Route: 048
  6. HYDROCODONE / IBUPROFEN [Concomitant]
     Dosage: 7.5 MG, QID
     Route: 048
  7. NORVASC [Concomitant]
     Route: 048

REACTIONS (12)
  - Dyspnoea exertional [Unknown]
  - White blood cell count decreased [Unknown]
  - Photophobia [Unknown]
  - Insomnia [Not Recovered/Not Resolved]
  - Visual impairment [Unknown]
  - Anxiety [Not Recovered/Not Resolved]
  - Onychomadesis [Unknown]
  - Throat irritation [Unknown]
  - Constipation [Unknown]
  - Fatigue [Unknown]
  - Rash [Unknown]
  - Red blood cell count decreased [Unknown]
